FAERS Safety Report 5879394-6 (Version None)
Quarter: 2008Q3

REPORT INFORMATION
  Report Type: 
  Country: None (occurrence: None)
  Receive Date: 20080912
  Receipt Date: 20080909
  Transmission Date: 20090109
  Serious: Yes (Death)
  Sender: FDA-Public Use
  Company Number: B0531572A

PATIENT
  Age: 46 Year
  Sex: Female
  Weight: 46 kg

DRUGS (4)
  1. FLOLAN [Suspect]
     Indication: PULMONARY ARTERIAL HYPERTENSION
     Route: 042
     Dates: start: 20040120
  2. FUROSEMIDE [Concomitant]
  3. DOPAMINE HCL [Concomitant]
  4. DOBUTREX [Concomitant]

REACTIONS (2)
  - DEATH [None]
  - HAEMORRHAGE [None]
